FAERS Safety Report 6139613-8 (Version None)
Quarter: 2009Q1

REPORT INFORMATION
  Report Type: 
  Country: None (occurrence: None)
  Receive Date: 20090331
  Receipt Date: 20090331
  Transmission Date: 20090719
  Serious: Yes (Other)
  Sender: FDA-Public Use
  Company Number: None

PATIENT
  Age: 5 Year
  Sex: Female
  Weight: 22.6799 kg

DRUGS (1)
  1. AMOXICILLIN [Suspect]
     Dosage: 5ML TID
     Dates: start: 20090320, end: 20090326

REACTIONS (4)
  - EYE SWELLING [None]
  - RASH GENERALISED [None]
  - RASH PRURITIC [None]
  - SWELLING FACE [None]
